FAERS Safety Report 14816778 (Version 5)
Quarter: 2019Q1

REPORT INFORMATION
  Report Type: Report from Study
  Country: None (occurrence: BR)
  Receive Date: 20180426
  Receipt Date: 20190109
  Transmission Date: 20190417
  Serious: Yes (Hospitalization, Disabling, Other)
  Sender: FDA-Public Use
  Company Number: BR-ABBVIE-18P-020-2306897-00

PATIENT
  Age: 79 Year
  Sex: Male
  Weight: 58.4 kg

DRUGS (37)
  1. FLUCONAZOL [Concomitant]
     Active Substance: FLUCONAZOLE
     Indication: ANTIFUNGAL PROPHYLAXIS
     Route: 048
     Dates: start: 20180305, end: 20180327
  2. BISOPROLOL [Concomitant]
     Active Substance: BISOPROLOL
     Indication: ISCHAEMIC HEART DISEASE PROPHYLAXIS
     Route: 048
     Dates: start: 20180224, end: 20180226
  3. NORMAL SALINE (0.9% SODIUM CHLORIDE) [Concomitant]
     Route: 042
     Dates: start: 20180209, end: 20180211
  4. NORMAL SALINE (0.9% SODIUM CHLORIDE) [Concomitant]
     Route: 042
     Dates: start: 20180602, end: 20180602
  5. FLUCONAZOL [Concomitant]
     Active Substance: FLUCONAZOLE
     Indication: ANTIFUNGAL PROPHYLAXIS
     Route: 048
     Dates: start: 20180220, end: 20180225
  6. ACYCLOVIR. [Concomitant]
     Active Substance: ACYCLOVIR
     Indication: ANTIFUNGAL PROPHYLAXIS
     Route: 048
     Dates: start: 20180305
  7. ZOLPIDEM [Concomitant]
     Active Substance: ZOLPIDEM\ZOLPIDEM TARTRATE
     Indication: INSOMNIA
     Dosage: 5-10MG AS NECESSARY
     Route: 048
     Dates: start: 2017
  8. ZOLPIDEM [Concomitant]
     Active Substance: ZOLPIDEM\ZOLPIDEM TARTRATE
     Route: 048
     Dates: start: 20180305
  9. OMEPRAZOLE. [Concomitant]
     Active Substance: OMEPRAZOLE
     Route: 048
     Dates: start: 20180509, end: 201806
  10. NORMAL SALINE (0.9% SODIUM CHLORIDE) [Concomitant]
     Route: 042
     Dates: start: 20180328, end: 20180328
  11. AZACITIDINE. [Suspect]
     Active Substance: AZACITIDINE
     Dosage: DAYS 1-7 OF EACH 28-DAY CYCLE
     Route: 058
     Dates: start: 20180430
  12. NORMAL SALINE (0.9% SODIUM CHLORIDE) [Concomitant]
     Route: 042
     Dates: start: 20180509, end: 20180510
  13. ENALAPRIL [Concomitant]
     Active Substance: ENALAPRIL
     Indication: CARDIOVASCULAR EVENT PROPHYLAXIS
     Route: 048
     Dates: start: 20180328
  14. NORMAL SALINE (0.9% SODIUM CHLORIDE) [Concomitant]
     Route: 042
     Dates: start: 20180306, end: 20180308
  15. NORMAL SALINE (0.9% SODIUM CHLORIDE) [Concomitant]
     Route: 042
     Dates: start: 20180529, end: 20180530
  16. VENETOCLAX. [Suspect]
     Active Substance: VENETOCLAX
     Route: 048
     Dates: start: 20180309, end: 20180402
  17. VENETOCLAX. [Suspect]
     Active Substance: VENETOCLAX
     Route: 048
     Dates: start: 20180430
  18. ALLOPURINOL. [Concomitant]
     Active Substance: ALLOPURINOL
     Indication: PROPHYLAXIS
     Route: 048
     Dates: start: 20180305, end: 20180420
  19. OMEPRAZOLE. [Concomitant]
     Active Substance: OMEPRAZOLE
     Indication: GASTRITIS PROPHYLAXIS
     Route: 042
     Dates: start: 20180310, end: 20180313
  20. NORMAL SALINE (0.9% SODIUM CHLORIDE) [Concomitant]
     Indication: PROPHYLAXIS
     Route: 042
     Dates: start: 20180220, end: 20180226
  21. BISOPROLOL [Concomitant]
     Active Substance: BISOPROLOL
     Indication: CARDIOVASCULAR EVENT PROPHYLAXIS
     Route: 048
     Dates: start: 20180305, end: 20180307
  22. BISOPROLOL [Concomitant]
     Active Substance: BISOPROLOL
     Route: 048
     Dates: start: 20180308, end: 20180309
  23. BISOPROLOL [Concomitant]
     Active Substance: BISOPROLOL
     Route: 048
     Dates: start: 20180315
  24. OMEPRAZOLE. [Concomitant]
     Active Substance: OMEPRAZOLE
     Route: 042
     Dates: start: 20180328, end: 20180425
  25. NORMAL SALINE (0.9% SODIUM CHLORIDE) [Concomitant]
     Route: 042
     Dates: start: 20180530, end: 20180531
  26. VENETOCLAX. [Suspect]
     Active Substance: VENETOCLAX
     Route: 048
     Dates: start: 20180308, end: 20180308
  27. ASPIRIN. [Concomitant]
     Active Substance: ASPIRIN
     Indication: ISCHAEMIC HEART DISEASE PROPHYLAXIS
     Route: 048
     Dates: start: 2007
  28. ISOSORBIDE. [Concomitant]
     Active Substance: ISOSORBIDE
     Route: 048
     Dates: start: 20180328
  29. NORMAL SALINE (0.9% SODIUM CHLORIDE) [Concomitant]
     Route: 042
     Dates: start: 20180603, end: 20180604
  30. AZACITIDINE. [Suspect]
     Active Substance: AZACITIDINE
     Indication: ACUTE MYELOID LEUKAEMIA
     Dosage: DAYS 1-7 OF EACH 28-DAY CYCLE
     Route: 058
     Dates: start: 20180307, end: 20180313
  31. ACYCLOVIR. [Concomitant]
     Active Substance: ACYCLOVIR
     Indication: ANTIVIRAL PROPHYLAXIS
     Route: 048
     Dates: start: 20180220, end: 20180225
  32. BISOPROLOL [Concomitant]
     Active Substance: BISOPROLOL
     Route: 048
     Dates: start: 20180310, end: 20180314
  33. CRESTOR [Concomitant]
     Active Substance: ROSUVASTATIN CALCIUM
     Indication: HYPERLIPIDAEMIA
     Route: 048
     Dates: start: 2017
  34. ISOSORBIDE. [Concomitant]
     Active Substance: ISOSORBIDE
     Indication: ISCHAEMIC HEART DISEASE PROPHYLAXIS
     Route: 060
     Dates: start: 20180309, end: 20180309
  35. NORMAL SALINE (0.9% SODIUM CHLORIDE) [Concomitant]
     Route: 042
     Dates: start: 20180311, end: 20180313
  36. NORMAL SALINE (0.9% SODIUM CHLORIDE) [Concomitant]
     Route: 042
     Dates: start: 20180510, end: 20180511
  37. VENETOCLAX. [Suspect]
     Active Substance: VENETOCLAX
     Indication: ACUTE MYELOID LEUKAEMIA
     Route: 048
     Dates: start: 20180307, end: 20180307

REACTIONS (4)
  - Thrombocytopenia [Recovered/Resolved]
  - Systemic mycosis [Recovered/Resolved]
  - Anaemia [Recovered/Resolved]
  - Systemic mycosis [Recovered/Resolved]

NARRATIVE: CASE EVENT DATE: 20180328
